FAERS Safety Report 16526291 (Version 3)
Quarter: 2019Q3

REPORT INFORMATION
  Report Type: Spontaneous
  Country: CA (occurrence: CA)
  Receive Date: 20190703
  Receipt Date: 20190808
  Transmission Date: 20191004
  Serious: Yes (Other)
  Sender: FDA-Public Use
  Company Number: CA-PFIZER INC-2019274265

PATIENT
  Age: 10 Year
  Sex: Male

DRUGS (11)
  1. RITUXIMAB. [Suspect]
     Active Substance: RITUXIMAB
     Indication: BURKITT^S LYMPHOMA STAGE III
     Dosage: 375 MG/M2, CYCLIC, ON DAY1 (DAY 6 OF COP) AND DAY 1 (NO THERAPY ON DAY 0)
     Route: 042
  2. FILGRASTIM [Concomitant]
     Active Substance: FILGRASTIM
     Indication: PROPHYLAXIS
     Dosage: 5 UG/KG, CYCLIC, FILGRASTIM (G-CSF) 5 G/KG/DOSE (MAX 300 G) S.C. DAILY [24 HOURS AFTER THE LAST DOSE
     Route: 058
  3. DOXORUBICIN HCL [Suspect]
     Active Substance: DOXORUBICIN HYDROCHLORIDE
     Indication: BURKITT^S LYMPHOMA STAGE III
     Dosage: 60 MG/M2, CYCLIC (I.V. OVER 15 MINUTES ON DAY 2 (AFTER THE FIRST DOSE OF CYCLOPHOSPHAMIDE))
     Route: 042
  4. HYDROCORTISONE SODIUM SUCCINATE [Suspect]
     Active Substance: HYDROCORTISONE SODIUM SUCCINATE
     Indication: BURKITT^S LYMPHOMA STAGE III
     Dosage: 15 MG, CYCLIC (15 MG 2 DOSES ON DAYS 2 AND 6)
     Route: 037
  5. PREDNISONE. [Suspect]
     Active Substance: PREDNISONE
     Indication: BURKITT^S LYMPHOMA STAGE III
     Dosage: 30 MG/M2, CYCLIC (P.O. B.I.D.*10 DOSES ON DAYS 1, 2, 3, 4, 5 AND)
     Route: 048
  6. LEVOFLOXACIN. [Concomitant]
     Active Substance: LEVOFLOXACIN
     Indication: PROPHYLAXIS
     Dosage: UNK UNK, CYCLIC
     Route: 048
  7. METHOTREXATE SODIUM. [Suspect]
     Active Substance: METHOTREXATE SODIUM
     Indication: BURKITT^S LYMPHOMA STAGE III
     Dosage: 3000 MG/M2, CYCLIC (HD METHOTREXATE 3000 MG/M2 I.V. OVER 3 HOURS ON DAY 1)
     Route: 042
  8. METHOTREXATE SODIUM. [Suspect]
     Active Substance: METHOTREXATE SODIUM
     Dosage: 15 MG, CYCLIC (METHOTREXATE IT: 15 MG 2 DOSES ON DAYS 2 AND 6)
     Route: 037
  9. VINCRISTINE SULFATE. [Suspect]
     Active Substance: VINCRISTINE SULFATE
     Indication: BURKITT^S LYMPHOMA STAGE III
     Dosage: 2 MG/M2, CYCLIC, 2 MG/M2 (MAX 2MG) I.V. PUSH ON DAY 1
     Route: 042
  10. CYCLOPHOSPHAMIDE. [Suspect]
     Active Substance: CYCLOPHOSPHAMIDE
     Indication: BURKITT^S LYMPHOMA STAGE III
     Dosage: 250 MG/M2, CYCLIC (250 MG/M2/DOSE I.V. OVER 30 MINUTES Q12H*6 DOSES ON DAYS 2, 3, 4)
     Route: 042
  11. FOLINIC ACID [Concomitant]
     Active Substance: LEUCOVORIN
     Indication: PROPHYLAXIS
     Dosage: 5 MG/M2, CYCLIC (5 MG/M2 AT 48 AND 60 HOURS AFTER INTRATHECAL MTX ON DAY 6)
     Route: 048

REACTIONS (3)
  - Hypotension [Unknown]
  - Febrile neutropenia [Recovered/Resolved]
  - Mucosal inflammation [Recovered/Resolved]
